FAERS Safety Report 10955892 (Version 1)
Quarter: 2015Q1

REPORT INFORMATION
  Report Type: Spontaneous
  Country: US (occurrence: None)
  Receive Date: 20150325
  Receipt Date: 20150325
  Transmission Date: 20150721
  Serious: Yes (Hospitalization)
  Sender: FDA-Public Use
  Company Number: None

PATIENT
  Age: 54 Year
  Sex: Male
  Weight: 68.04 kg

DRUGS (11)
  1. CETUXIMAB [Suspect]
     Active Substance: CETUXIMAB
  2. CLINDAMYCIN [Concomitant]
     Active Substance: CLINDAMYCIN\CLINDAMYCIN PHOSPHATE
  3. NOVOLOG [Concomitant]
     Active Substance: INSULIN ASPART
  4. HUMALIN [Concomitant]
     Active Substance: INSULIN NOS
  5. CARBOPLATIN. [Suspect]
     Active Substance: CARBOPLATIN
  6. ERLOTINIB [Suspect]
     Active Substance: ERLOTINIB
  7. ASPIRIN. [Concomitant]
     Active Substance: ASPIRIN
  8. DOXYCYCLINE. [Concomitant]
     Active Substance: DOXYCYCLINE
  9. LOVENOX [Concomitant]
     Active Substance: ENOXAPARIN SODIUM
  10. LISINOPRIL. [Concomitant]
     Active Substance: LISINOPRIL
  11. PACLITAXEL. [Suspect]
     Active Substance: PACLITAXEL

REACTIONS (3)
  - Epistaxis [None]
  - Haemoglobin decreased [None]
  - Neoplasm progression [None]

NARRATIVE: CASE EVENT DATE: 20150309
